FAERS Safety Report 7082217-3 (Version None)
Quarter: 2010Q4

REPORT INFORMATION
  Report Type: 
  Country: None (occurrence: None)
  Receive Date: 20101103
  Receipt Date: 20100712
  Transmission Date: 20110411
  Serious: Yes (Death, Hospitalization)
  Sender: FDA-Public Use
  Company Number: PHHO2003US01821

PATIENT
  Sex: Male
  Weight: 90.9 kg

DRUGS (4)
  1. STI571/CGP57148B T35717+CAPS [Suspect]
     Indication: GASTROINTESTINAL STROMAL TUMOUR
     Dosage: 400 MG, QD
     Route: 048
     Dates: start: 20000816
  2. VASOTEC [Concomitant]
  3. MULTIVITAMINS AND IRON [Concomitant]
  4. COUMADIN [Concomitant]

REACTIONS (6)
  - ADENOCARCINOMA [None]
  - CHEST TUBE INSERTION [None]
  - DEATH [None]
  - MALIGNANT PLEURAL EFFUSION [None]
  - PLEURAL EFFUSION [None]
  - PLEURODESIS [None]
